FAERS Safety Report 18349419 (Version 1)
Quarter: 2020Q4

REPORT INFORMATION
  Report Type: Not Available
  Country: US (occurrence: US)
  Receive Date: 20201006
  Receipt Date: 20201006
  Transmission Date: 20210114
  Serious: Yes (Other)
  Sender: FDA-Public Use
  Company Number: US-NEUROCRINE BIOSCIENCES INC.-2020NBI03510

PATIENT
  Age: 66 Year
  Sex: Male

DRUGS (1)
  1. INGREZZA [Suspect]
     Active Substance: VALBENAZINE
     Indication: TARDIVE DYSKINESIA
     Route: 048
     Dates: start: 20200618

REACTIONS (3)
  - Transient ischaemic attack [Recovered/Resolved]
  - Erosive oesophagitis [Unknown]
  - Depression [Unknown]

NARRATIVE: CASE EVENT DATE: 2020
